FAERS Safety Report 24018886 (Version 1)
Quarter: 2024Q2

REPORT INFORMATION
  Report Type: Spontaneous
  Country: BR (occurrence: BR)
  Receive Date: 20240627
  Receipt Date: 20240627
  Transmission Date: 20240716
  Serious: Yes (Life-Threatening, Hospitalization, Other)
  Sender: FDA-Public Use
  Company Number: BR-BRISTOL-MYERS SQUIBB COMPANY-2024-102069

PATIENT
  Sex: Female

DRUGS (2)
  1. CAMZYOS [Suspect]
     Active Substance: MAVACAMTEN
     Indication: Hypertrophic cardiomyopathy
     Dosage: DOSE : 15MG;10MG;     FREQ : ONCE A DAY
  2. CAMZYOS [Suspect]
     Active Substance: MAVACAMTEN
     Dosage: DOSE : 15MG;10MG;     FREQ : ONCE A DAY

REACTIONS (2)
  - Systolic dysfunction [Unknown]
  - Pulmonary congestion [Unknown]
